FAERS Safety Report 5729042-0 (Version None)
Quarter: 2008Q2

REPORT INFORMATION
  Report Type: 
  Country: None (occurrence: None)
  Receive Date: 20080505
  Receipt Date: 20080505
  Transmission Date: 20081010
  Serious: Yes (Other)
  Sender: FDA-Public Use
  Company Number: None

PATIENT
  Sex: Female
  Weight: 102.0593 kg

DRUGS (2)
  1. VYTORIN [Suspect]
     Indication: BLOOD CHOLESTEROL INCREASED
     Dosage: 10/40 QD P.O.
     Route: 048
     Dates: start: 20071206, end: 20080223
  2. ZETIA [Suspect]
     Indication: BLOOD CHOLESTEROL INCREASED
     Dosage: 10  QD P.O.
     Route: 048
     Dates: start: 20080223, end: 20080306

REACTIONS (10)
  - ACNE [None]
  - CHEST DISCOMFORT [None]
  - DEMENTIA [None]
  - EPISTAXIS [None]
  - HUNGER [None]
  - LIBIDO INCREASED [None]
  - LIMB DISCOMFORT [None]
  - MUSCULAR WEAKNESS [None]
  - PRURITUS [None]
  - SLEEP DISORDER [None]
